FAERS Safety Report 13266206 (Version 1)
Quarter: 2017Q1

REPORT INFORMATION
  Report Type: Report from Study
  Country: US (occurrence: US)
  Receive Date: 20170223
  Receipt Date: 20170223
  Transmission Date: 20170428
  Serious: No
  Sender: FDA-Public Use
  Company Number: US-009507513-1702USA004302

PATIENT

DRUGS (1)
  1. JANUVIA [Suspect]
     Active Substance: SITAGLIPTIN PHOSPHATE
     Dosage: 50 MG, 2 TABLETS/TWICE A DAY
     Route: 048

REACTIONS (3)
  - Drug dose omission [Unknown]
  - Product supply issue [Unknown]
  - No adverse event [Unknown]
